FAERS Safety Report 5752141-4 (Version None)
Quarter: 2008Q2

REPORT INFORMATION
  Report Type: 
  Country: None (occurrence: None)
  Receive Date: 20080529
  Receipt Date: 20080521
  Transmission Date: 20081010
  Serious: Yes (Hospitalization)
  Sender: FDA-Public Use
  Company Number: CA-JNJFOC-20080505153

PATIENT
  Age: 6 Decade
  Sex: Female

DRUGS (9)
  1. REMICADE [Suspect]
     Route: 042
  2. REMICADE [Suspect]
     Indication: CROHN'S DISEASE
     Dosage: 7TH INFUSION
     Route: 042
  3. FERROUS SULFATE TAB [Concomitant]
  4. CALCIUM VITAMIN D [Concomitant]
  5. FOLIC ACID [Concomitant]
  6. DIOVAN [Concomitant]
  7. RESTORIL [Concomitant]
  8. FOSAMAX [Concomitant]
  9. TOFRANIL [Concomitant]

REACTIONS (1)
  - INTESTINAL RESECTION [None]
